FAERS Safety Report 22121179 (Version 1)
Quarter: 2023Q1

REPORT INFORMATION
  Report Type: Spontaneous
  Country: CA (occurrence: CA)
  Receive Date: 20230321
  Receipt Date: 20230321
  Transmission Date: 20230417
  Serious: Yes (Life-Threatening, Hospitalization, Other)
  Sender: FDA-Public Use
  Company Number: CA-BRACCO-2023CA00934

PATIENT
  Age: 87 Year
  Sex: Male

DRUGS (10)
  1. SULFUR HEXAFLUORIDE [Suspect]
     Active Substance: SULFUR HEXAFLUORIDE
     Indication: Echocardiogram
     Dosage: 2.5 ML, SINGLE
     Route: 042
     Dates: start: 20230228, end: 20230228
  2. SULFUR HEXAFLUORIDE [Suspect]
     Active Substance: SULFUR HEXAFLUORIDE
     Indication: Echocardiogram
     Dosage: 2.5 ML, SINGLE
     Route: 042
     Dates: start: 20230228, end: 20230228
  3. SULFUR HEXAFLUORIDE [Suspect]
     Active Substance: SULFUR HEXAFLUORIDE
     Indication: Echocardiogram
     Dosage: 2.5 ML, SINGLE
     Route: 042
     Dates: start: 20230228, end: 20230228
  4. ELIQUIS [Concomitant]
     Active Substance: APIXABAN
  5. ISOSORBIDE MONONITRATE [Concomitant]
     Active Substance: ISOSORBIDE MONONITRATE
     Route: 048
  6. METOPROLOL [Concomitant]
     Active Substance: METOPROLOL
  7. OMEGA-3 FATTY ACIDS [Concomitant]
     Active Substance: OMEGA-3 FATTY ACIDS
  8. PANTOPRAZOLE SODIUM [Concomitant]
     Active Substance: PANTOPRAZOLE SODIUM
  9. RAMIPRIL [Concomitant]
     Active Substance: RAMIPRIL
  10. CRESTOR [Concomitant]
     Active Substance: ROSUVASTATIN CALCIUM

REACTIONS (14)
  - Cardio-respiratory arrest [Recovered/Resolved]
  - Renal failure [Recovering/Resolving]
  - Ventricular fibrillation [Recovered/Resolved]
  - Pulse absent [Recovered/Resolved]
  - Pneumothorax [Recovered/Resolved]
  - White blood cell count increased [Recovering/Resolving]
  - Feeling abnormal [Recovering/Resolving]
  - Chest pain [Recovering/Resolving]
  - Erythema [Recovered/Resolved]
  - Dyspnoea [Recovering/Resolving]
  - Paraesthesia [Recovering/Resolving]
  - Nausea [Recovering/Resolving]
  - Pyrexia [Recovering/Resolving]
  - Flushing [Recovering/Resolving]

NARRATIVE: CASE EVENT DATE: 20230228
